FAERS Safety Report 4900173-8 (Version None)
Quarter: 2006Q1

REPORT INFORMATION
  Report Type: 
  Country: None (occurrence: None)
  Receive Date: 20060203
  Receipt Date: 20050505
  Transmission Date: 20060701
  Serious: No
  Sender: FDA-Public Use
  Company Number: US-GLAXOSMITHKLINE-A0557419A

PATIENT
  Age: 53 Year
  Sex: Female

DRUGS (2)
  1. ARIXTRA [Suspect]
     Dosage: 2.5MG PER DAY
     Route: 058
     Dates: start: 20050429
  2. NO CONCURRENT MEDICATION [Concomitant]

REACTIONS (2)
  - CONTUSION [None]
  - PHARMACEUTICAL PRODUCT COMPLAINT [None]
